FAERS Safety Report 5055805-3 (Version None)
Quarter: 2006Q3

REPORT INFORMATION
  Report Type: 
  Country: None (occurrence: None)
  Receive Date: 20060718
  Receipt Date: 20060718
  Transmission Date: 20061208
  Serious: Yes (Life-Threatening, Hospitalization)
  Sender: FDA-Public Use
  Company Number: None

PATIENT
  Age: 40 Year
  Sex: Male

DRUGS (1)
  1. VIREAD [Suspect]
     Indication: HIV INFECTION
     Dosage: 300 MG DAILY PO
     Route: 048
     Dates: start: 20060101, end: 20060516

REACTIONS (7)
  - DIALYSIS [None]
  - DRUG TOXICITY [None]
  - FALL [None]
  - NEPHROPATHY TOXIC [None]
  - POLYURIA [None]
  - RENAL FAILURE ACUTE [None]
  - RENAL TUBULAR NECROSIS [None]
